FAERS Safety Report 24816940 (Version 1)
Quarter: 2025Q1

REPORT INFORMATION
  Report Type: Other
  Country: CA (occurrence: CA)
  Receive Date: 20250108
  Receipt Date: 20250108
  Transmission Date: 20250409
  Serious: Yes (Other)
  Sender: APOTEX
  Company Number: CA-APOTEX-2025AP000039

PATIENT
  Age: 48 Year
  Sex: Female

DRUGS (8)
  1. ZOLEDRONIC ACID [Suspect]
     Active Substance: ZOLEDRONIC ACID
     Indication: Metastases to bone
     Route: 042
  2. ZOLEDRONIC ACID [Suspect]
     Active Substance: ZOLEDRONIC ACID
     Indication: Invasive lobular breast carcinoma
     Route: 065
  3. PALBOCICLIB ISETHIONATE [Concomitant]
     Active Substance: PALBOCICLIB ISETHIONATE
     Indication: Metastases to bone
     Dosage: 100 MILLIGRAM, QD
     Route: 065
  4. PALBOCICLIB ISETHIONATE [Concomitant]
     Active Substance: PALBOCICLIB ISETHIONATE
     Indication: Invasive lobular breast carcinoma
     Route: 065
  5. GOSERELIN [Concomitant]
     Active Substance: GOSERELIN
     Indication: Metastases to bone
     Route: 065
  6. GOSERELIN [Concomitant]
     Active Substance: GOSERELIN
     Indication: Invasive lobular breast carcinoma
  7. GOSERELIN [Concomitant]
     Active Substance: GOSERELIN
     Indication: Metastases to bone
     Route: 058
  8. GOSERELIN [Concomitant]
     Active Substance: GOSERELIN
     Indication: Invasive lobular breast carcinoma

REACTIONS (2)
  - Periorbital inflammation [Recovered/Resolved]
  - Uveitis [Recovered/Resolved]
